FAERS Safety Report 6409450-5 (Version None)
Quarter: 2009Q4

REPORT INFORMATION
  Report Type: 
  Country: None (occurrence: None)
  Receive Date: 20091016
  Receipt Date: 20091002
  Transmission Date: 20100525
  Serious: Yes (Other)
  Sender: FDA-Public Use
  Company Number: 062750-2009-00015

PATIENT
  Age: 54 Year
  Sex: Female

DRUGS (1)
  1. ZICAM COLD REMEDY RAPIDMELTS WITH VIT C + ECHINACEA [Suspect]
     Indication: NASOPHARYNGITIS
     Dosage: 4X DAY FOR 5 DAYS
     Dates: start: 20090918, end: 20090923

REACTIONS (4)
  - GLOSSODYNIA [None]
  - LOSS OF CONSCIOUSNESS [None]
  - NERVOUS SYSTEM DISORDER [None]
  - SPEECH DISORDER [None]
